FAERS Safety Report 21896426 (Version 1)
Quarter: 2023Q1

REPORT INFORMATION
  Report Type: Spontaneous
  Country: US (occurrence: None)
  Receive Date: 20230123
  Receipt Date: 20230123
  Transmission Date: 20230417
  Serious: Yes (Hospitalization, Other)
  Sender: FDA-Public Use
  Company Number: 2023A009132

PATIENT
  Age: 734 Month
  Sex: Female
  Weight: 108.9 kg

DRUGS (3)
  1. FARXIGA [Suspect]
     Active Substance: DAPAGLIFLOZIN PROPANEDIOL
     Indication: Type 2 diabetes mellitus
     Route: 048
     Dates: start: 202204, end: 202206
  2. CARVEDILOL [Concomitant]
     Active Substance: CARVEDILOL
     Indication: Hypertension
     Route: 065
  3. BUMEX [Concomitant]
     Active Substance: BUMETANIDE
     Indication: Hypertension
     Route: 065

REACTIONS (9)
  - Sepsis [Unknown]
  - Depression [Unknown]
  - Suicidal ideation [Unknown]
  - Renal pain [Unknown]
  - Memory impairment [Unknown]
  - Confusional state [Unknown]
  - Dyspnoea [Unknown]
  - Paranoia [Unknown]
  - Vomiting [Unknown]

NARRATIVE: CASE EVENT DATE: 20220501
